FAERS Safety Report 7415542 (Version 2)
Quarter: 2015Q4

REPORT INFORMATION
  Report Type: Report from Study
  Country: US (occurrence: US)
  Receive Date: 20100610
  Receipt Date: 20151202
  Transmission Date: 20160305
  Serious: Yes (Hospitalization)
  Sender: FDA-Public Use
  Company Number: US-ROCHE-708081

PATIENT
  Age: 51 Year

DRUGS (2)
  1. PACLITAXEL. [Suspect]
     Active Substance: PACLITAXEL
     Indication: BREAST CANCER METASTATIC
     Dosage: FREQUENCY: OVER 30 MINUTES ON DAYS 1, 8 AND 15. CYCLE 28 DAYS.
     Route: 042
     Dates: start: 20100211
  2. BEVACIZUMAB [Suspect]
     Active Substance: BEVACIZUMAB
     Indication: BREAST CANCER METASTATIC
     Dosage: DAY 1 AND 15. GIVEN ONVER 30 TO 90 MINS. LAST CYCLE PRIOR TO SAE: 21 APRIL 2010.
     Route: 042

REACTIONS (11)
  - Decreased appetite [Unknown]
  - Confusional state [Unknown]
  - Dyspnoea [Unknown]
  - Hyponatraemia [Unknown]
  - Muscular weakness [Unknown]
  - Sepsis [Unknown]
  - Infection [Unknown]
  - Fatigue [Unknown]
  - Acute respiratory distress syndrome [Unknown]
  - Pneumonitis [Unknown]
  - Cognitive disorder [Unknown]

NARRATIVE: CASE EVENT DATE: 20100428
